FAERS Safety Report 4331251-2 (Version None)
Quarter: 2004Q1

REPORT INFORMATION
  Report Type: 
  Country: None (occurrence: None)
  Receive Date: 20040329
  Receipt Date: 20040312
  Transmission Date: 20041129
  Serious: Yes (Hospitalization, Other)
  Sender: FDA-Public Use
  Company Number: USA-2003-0006237

PATIENT
  Age: 38 Year
  Sex: Female
  Weight: 73.5 kg

DRUGS (12)
  1. OXYCONTIN [Suspect]
     Indication: PAIN
     Dosage: SEE TEXT, ORAL
     Route: 048
     Dates: start: 20010201
  2. SOMA [Concomitant]
  3. TORADOL [Concomitant]
  4. PAXIL [Concomitant]
  5. LORTAB [Concomitant]
  6. XANAX [Concomitant]
  7. NEURONTIN [Concomitant]
  8. VIOXX [Concomitant]
  9. MOTRIN [Concomitant]
  10. FLEXERIL (CYCLOBENAZAPRINE HYDROCHLORIDE) [Concomitant]
  11. BEXTRA [Concomitant]
  12. ESTRADIOL [Concomitant]

REACTIONS (25)
  - ADENOMYOSIS [None]
  - ANXIETY [None]
  - ASTHENIA [None]
  - BACK PAIN [None]
  - COUGH [None]
  - DEPRESSION [None]
  - DISEASE RECURRENCE [None]
  - DIZZINESS [None]
  - DRUG DEPENDENCE [None]
  - DRUG WITHDRAWAL SYNDROME [None]
  - DYSFUNCTIONAL UTERINE BLEEDING [None]
  - FATIGUE [None]
  - HEADACHE [None]
  - INSOMNIA [None]
  - NAUSEA [None]
  - OVARIAN CYST [None]
  - PAIN [None]
  - PELVIC PAIN [None]
  - PHARYNGOLARYNGEAL PAIN [None]
  - POSTNASAL DRIP [None]
  - RASH SCALY [None]
  - SNEEZING [None]
  - UTERINE ENLARGEMENT [None]
  - UTERINE LEIOMYOMA [None]
  - UTERINE POLYP [None]
